FAERS Safety Report 23333936 (Version 1)
Quarter: 2023Q4

REPORT INFORMATION
  Report Type: Report from Study
  Country: NL (occurrence: NL)
  Receive Date: 20231223
  Receipt Date: 20231223
  Transmission Date: 20240110
  Serious: Yes (Hospitalization)
  Sender: FDA-Public Use
  Company Number: NL-MYLANLABS-2023M1129604

PATIENT
  Age: 78 Year
  Sex: Female

DRUGS (1)
  1. CREON [Suspect]
     Active Substance: PANCRELIPASE AMYLASE\PANCRELIPASE LIPASE\PANCRELIPASE PROTEASE
     Indication: Pancreatic carcinoma
     Dosage: UNK
     Route: 048
     Dates: start: 20230922

REACTIONS (1)
  - Pancreaticoduodenectomy [Recovering/Resolving]

NARRATIVE: CASE EVENT DATE: 20231122
